FAERS Safety Report 8247418-7 (Version None)
Quarter: 2012Q1

REPORT INFORMATION
  Report Type: 
  Country: None (occurrence: None)
  Receive Date: 20120330
  Receipt Date: 20120323
  Transmission Date: 20120608
  Serious: Yes (Hospitalization)
  Sender: FDA-Public Use
  Company Number: US-ABBOTT-12P-163-0918425-00

PATIENT
  Age: 34 Year
  Sex: Female

DRUGS (12)
  1. TORADOL [Suspect]
     Indication: MIGRAINE
  2. BENADRYL [Suspect]
     Indication: MIGRAINE
  3. TRIAMCINOLONE [Concomitant]
     Indication: PSORIASIS
     Route: 061
  4. ACETONIDE [Concomitant]
     Indication: PSORIASIS
     Route: 061
  5. HALOG [Concomitant]
     Indication: PSORIASIS
     Dosage: 2-3 TIMES DAILY
     Route: 061
  6. TYLENOL [Suspect]
     Indication: MIGRAINE
  7. PHENERGAN HCL [Suspect]
     Indication: MIGRAINE
  8. PROTONICS [Concomitant]
     Indication: PRODUCT USED FOR UNKNOWN INDICATION
  9. HUMIRA [Suspect]
     Indication: PSORIASIS
     Dates: start: 20120215
  10. IMITREX [Suspect]
     Indication: MIGRAINE
     Dates: start: 20120319
  11. KLONOPIN [Concomitant]
     Indication: PRODUCT USED FOR UNKNOWN INDICATION
  12. ALLERGY [Concomitant]
     Indication: PRODUCT USED FOR UNKNOWN INDICATION
     Dosage: WEEKLY

REACTIONS (5)
  - HYPERSENSITIVITY [None]
  - MUSCLE SPASMS [None]
  - MIGRAINE [None]
  - BLOOD PRESSURE INCREASED [None]
  - INJECTION SITE PAIN [None]
